FAERS Safety Report 11276614 (Version 1)
Quarter: 2015Q3

REPORT INFORMATION
  Report Type: Spontaneous
  Country: FR (occurrence: FR)
  Receive Date: 20150716
  Receipt Date: 20150716
  Transmission Date: 20151125
  Serious: Yes (Hospitalization)
  Sender: FDA-Public Use
  Company Number: FR-PFIZER INC-2015232687

PATIENT
  Age: 63 Year
  Sex: Male

DRUGS (2)
  1. PHENYTOIN SODIUM. [Suspect]
     Active Substance: PHENYTOIN SODIUM
     Indication: EPILEPSY
     Dosage: UNK
  2. CAFFEINE/PHENOBARBITAL [Concomitant]
     Indication: EPILEPSY
     Dosage: UNK

REACTIONS (1)
  - Status epilepticus [Unknown]
